FAERS Safety Report 6565704-3 (Version None)
Quarter: 2010Q1

REPORT INFORMATION
  Report Type: 
  Country: None (occurrence: None)
  Receive Date: 20100201
  Receipt Date: 20100120
  Transmission Date: 20100710
  Serious: Yes (Other)
  Sender: FDA-Public Use
  Company Number: ES-GENENTECH-294945

PATIENT
  Age: 36 Year
  Sex: Male

DRUGS (2)
  1. XOLAIR [Suspect]
     Indication: DRUG USE FOR UNKNOWN INDICATION
     Dosage: 375 MG, Q2W
     Route: 058
  2. XOLAIR [Suspect]
     Dosage: UNK

REACTIONS (2)
  - ANAPHYLACTIC REACTION [None]
  - ANAPHYLACTOID REACTION [None]
